FAERS Safety Report 9371444 (Version 2)
Quarter: 2013Q3

REPORT INFORMATION
  Report Type: Spontaneous
  Country: JP (occurrence: JP)
  Receive Date: 20130627
  Receipt Date: 20130809
  Transmission Date: 20140515
  Serious: Yes (Other)
  Sender: FDA-Public Use
  Company Number: JP-JNJFOC-20130615840

PATIENT
  Age: 44 Year
  Sex: Female

DRUGS (4)
  1. PROGRAF [Suspect]
     Indication: MYASTHENIA GRAVIS
     Route: 048
     Dates: start: 200712
  2. ITRIZOLE [Interacting]
     Indication: DERMATOPHYTOSIS
     Route: 048
  3. PREDNISOLON [Suspect]
     Indication: MYASTHENIA GRAVIS
     Route: 048
     Dates: start: 200712
  4. TERBINAFINE HYDROCHLORIDE [Concomitant]
     Indication: DERMATOPHYTOSIS
     Route: 048

REACTIONS (2)
  - Trichophytosis [Recovering/Resolving]
  - Drug interaction [Unknown]
